FAERS Safety Report 19422001 (Version 2)
Quarter: 2021Q2

REPORT INFORMATION
  Report Type: Report from Study
  Country: AR (occurrence: AR)
  Receive Date: 20210616
  Receipt Date: 20210622
  Transmission Date: 20210717
  Serious: Yes (Death, Other)
  Sender: FDA-Public Use
  Company Number: NVSC2021AR134232

PATIENT
  Age: 34 Year
  Sex: Female

DRUGS (2)
  1. FEMARA [Suspect]
     Active Substance: LETROZOLE
     Indication: BREAST CANCER METASTATIC
     Dosage: 2.5 MG, QD
     Route: 048
     Dates: start: 20210417, end: 20210604
  2. KISQALI [Suspect]
     Active Substance: RIBOCICLIB
     Indication: BREAST CANCER METASTATIC
     Dosage: 600 MG, QD
     Route: 048
     Dates: start: 20210417, end: 20210604

REACTIONS (13)
  - General physical health deterioration [Unknown]
  - Bone pain [Unknown]
  - Lymphangitis [Unknown]
  - Pulmonary oedema [Unknown]
  - Breast cancer metastatic [Unknown]
  - Oxygen saturation decreased [Fatal]
  - Respiratory disorder [Fatal]
  - Dyspnoea [Fatal]
  - Drug ineffective [Unknown]
  - Pain [Unknown]
  - Malignant neoplasm progression [Unknown]
  - Nodule [Unknown]
  - Insomnia [Unknown]

NARRATIVE: CASE EVENT DATE: 20210603
